FAERS Safety Report 15418077 (Version 1)
Quarter: 2018Q3

REPORT INFORMATION
  Report Type: Spontaneous
  Country: JP (occurrence: JP)
  Receive Date: 20180924
  Receipt Date: 20180924
  Transmission Date: 20181010
  Serious: Yes (Other)
  Sender: FDA-Public Use
  Company Number: JP-BRISTOL-MYERS SQUIBB COMPANY-BMS-2018-086845

PATIENT
  Age: 77 Year
  Sex: Male

DRUGS (1)
  1. KENACORT?A [Suspect]
     Active Substance: TRIAMCINOLONE
     Indication: MACULAR OEDEMA
     Route: 065

REACTIONS (3)
  - Product use in unapproved indication [Unknown]
  - Eye infection syphilitic [Unknown]
  - Product use issue [Unknown]
